FAERS Safety Report 20802696 (Version 1)
Quarter: 2022Q2

REPORT INFORMATION
  Report Type: Spontaneous
  Country: US (occurrence: US)
  Receive Date: 20220509
  Receipt Date: 20220509
  Transmission Date: 20220720
  Serious: No
  Sender: FDA-Public Use
  Company Number: US-HORIZON THERAPEUTICS-HZN-2022-002463

PATIENT
  Sex: Female

DRUGS (1)
  1. DUEXIS [Suspect]
     Active Substance: FAMOTIDINE\IBUPROFEN
     Indication: Osteoarthritis
     Dosage: 800 MG, BID
     Route: 048

REACTIONS (3)
  - Sneezing [Unknown]
  - Hypersensitivity [Unknown]
  - Seasonal allergy [Unknown]
